FAERS Safety Report 14638682 (Version 2)
Quarter: 2018Q2

REPORT INFORMATION
  Report Type: Report from Study
  Country: US (occurrence: US)
  Receive Date: 20180314
  Receipt Date: 20180506
  Transmission Date: 20180711
  Serious: No
  Sender: FDA-Public Use
  Company Number: PHEH2018US009066

PATIENT
  Age: 38 Year
  Sex: Female

DRUGS (1)
  1. GILENYA [Suspect]
     Active Substance: FINGOLIMOD HYDROCHLORIDE
     Indication: PRODUCT USED FOR UNKNOWN INDICATION
     Dosage: 0.5 MG, QD
     Route: 048

REACTIONS (10)
  - Visual impairment [Unknown]
  - Decreased appetite [Unknown]
  - Dizziness [Unknown]
  - Anxiety [Unknown]
  - Memory impairment [Unknown]
  - Swollen tongue [Unknown]
  - Tremor [Unknown]
  - Pain [Unknown]
  - Dry mouth [Unknown]
  - Fall [Unknown]

NARRATIVE: CASE EVENT DATE: 20180219
